FAERS Safety Report 6207767-0 (Version None)
Quarter: 2009Q2

REPORT INFORMATION
  Report Type: 
  Country: None (occurrence: None)
  Receive Date: 20090526
  Receipt Date: 20090512
  Transmission Date: 20091009
  Serious: Yes (Hospitalization, Other)
  Sender: FDA-Public Use
  Company Number: 2009AP001718

PATIENT
  Age: 62 Year
  Sex: Male

DRUGS (7)
  1. RAMIPRIL [Suspect]
     Dosage: 10 MG; QD
  2. ACETASALICYCIC ACID [Concomitant]
  3. AMLODIPINE [Concomitant]
  4. METOPROLOL SUCCINATE [Concomitant]
  5. FUROSEMIDE [Concomitant]
  6. ATORVASTATIN CALCIUM [Concomitant]
  7. GLYCERYL TRINITRATE [Concomitant]

REACTIONS (14)
  - ABDOMINAL PAIN [None]
  - ANAPHYLACTOID REACTION [None]
  - BLOOD PRESSURE DECREASED [None]
  - BLOOD PRESSURE IMMEASURABLE [None]
  - BRADYCARDIA [None]
  - CORONARY ARTERY OCCLUSION [None]
  - DEVICE INTERACTION [None]
  - DIARRHOEA [None]
  - HAEMODIALYSIS [None]
  - HYPERHIDROSIS [None]
  - LOSS OF CONSCIOUSNESS [None]
  - MYOCARDIAL ISCHAEMIA [None]
  - PRESYNCOPE [None]
  - VOMITING [None]
